FAERS Safety Report 6179498-7 (Version None)
Quarter: 2009Q2

REPORT INFORMATION
  Report Type: 
  Country: None (occurrence: None)
  Receive Date: 20090501
  Receipt Date: 20090501
  Transmission Date: 20091009
  Serious: Yes (Other)
  Sender: FDA-Public Use
  Company Number: None

PATIENT
  Age: 56 Year
  Sex: Female
  Weight: 104.3273 kg

DRUGS (1)
  1. NOVOLIN N [Suspect]
     Indication: DIABETES MELLITUS
     Dosage: 22-25 UNITS BEDTIME SQ
     Route: 058
     Dates: start: 20090301, end: 20090406

REACTIONS (3)
  - BLOOD GLUCOSE INCREASED [None]
  - FOREIGN BODY TRAUMA [None]
  - PRURITUS [None]
